FAERS Safety Report 7918078-7 (Version None)
Quarter: 2011Q4

REPORT INFORMATION
  Report Type: 
  Country: None (occurrence: None)
  Receive Date: 20111116
  Receipt Date: 20111107
  Transmission Date: 20120403
  Serious: Yes (Other)
  Sender: FDA-Public Use
  Company Number: JP-JNJFOC-20111102441

PATIENT
  Age: 74 Year
  Sex: Female

DRUGS (3)
  1. FENTANYL CITRATE [Suspect]
     Indication: PRODUCT USED FOR UNKNOWN INDICATION
     Route: 042
  2. LYRICA [Suspect]
     Indication: BACK PAIN
     Route: 048
  3. TRAMADOL HYDROCHLORIDE AND ACETAMINOPHEN [Suspect]
     Indication: BACK PAIN
     Dosage: 1 PER ONE DAY
     Route: 048
     Dates: start: 20111024, end: 20111028

REACTIONS (1)
  - PAIN [None]
